FAERS Safety Report 10173117 (Version 2)
Quarter: 2018Q2

REPORT INFORMATION
  Report Type: Spontaneous
  Country: US (occurrence: US)
  Receive Date: 20140515
  Receipt Date: 20180418
  Transmission Date: 20180711
  Serious: No
  Sender: FDA-Public Use
  Company Number: US-PFIZER INC-2014127833

PATIENT
  Age: 43 Year
  Sex: Female

DRUGS (16)
  1. KETOROLAC TROMETHAMINE. [Suspect]
     Active Substance: KETOROLAC TROMETHAMINE
     Dosage: UNK
  2. CEFTAROLINE [Suspect]
     Active Substance: CEFTAROLINE
     Dosage: UNK
  3. TEFLARO [Suspect]
     Active Substance: CEFTAROLINE FOSAMIL
     Dosage: UNK
  4. NORVASC [Suspect]
     Active Substance: AMLODIPINE BESYLATE
     Dosage: 10 MG, DAILY
     Route: 048
  5. DOXYCYCLINE HYCLATE. [Suspect]
     Active Substance: DOXYCYCLINE HYCLATE
     Dosage: UNK
  6. PRINIVIL [Suspect]
     Active Substance: LISINOPRIL
     Dosage: 10 MG, DAILY
     Route: 048
  7. ZESTRIL [Suspect]
     Active Substance: LISINOPRIL
     Dosage: 10 MG, DAILY
     Route: 048
  8. DAPTOMYCIN. [Suspect]
     Active Substance: DAPTOMYCIN
     Dosage: UNK
  9. METHYLPREDNISOLONE. [Suspect]
     Active Substance: METHYLPREDNISOLONE
     Dosage: UNK
  10. VANCOCIN [Suspect]
     Active Substance: VANCOMYCIN HYDROCHLORIDE
     Indication: STAPHYLOCOCCAL INFECTION
  11. CEFTRIAXONE. [Suspect]
     Active Substance: CEFTRIAXONE
     Dosage: UNK
  12. VANCOCIN [Suspect]
     Active Substance: VANCOMYCIN HYDROCHLORIDE
     Indication: STAPHYLOCOCCAL INFECTION
     Dosage: 1000 MG, 2X/DAY(1000 MG IN SODIUM CHLORIDE 250 ML IVPB, INJECT 1000 MG INTO VEIN EVERY 12 HOURS)
     Route: 042
  13. HYDROCHLOROTHIAZIDE. [Suspect]
     Active Substance: HYDROCHLOROTHIAZIDE
     Dosage: 25 MG, DAILY
     Route: 048
  14. CEFTRIAXONE SODIUM. [Suspect]
     Active Substance: CEFTRIAXONE SODIUM
     Dosage: UNK
  15. VICODIN [Suspect]
     Active Substance: ACETAMINOPHEN\HYDROCODONE BITARTRATE
     Indication: PAIN
     Dosage: 5MG/500MG, 1 DF, EVERY 4 HRS, AS NEEDED
     Route: 048
  16. VICODIN [Suspect]
     Active Substance: ACETAMINOPHEN\HYDROCODONE BITARTRATE
     Dosage: 1 DF, AS NEEDED[HYDROCODONE BITARTRATE: 5 MG/[PARACETAMOL: 500 MG](EVERY 4 HRS, AS NEEDED)
     Route: 048

REACTIONS (10)
  - Fatigue [Unknown]
  - Nausea [Unknown]
  - Decreased appetite [Unknown]
  - Rash maculo-papular [Unknown]
  - Chills [Unknown]
  - Vomiting [Unknown]
  - Eosinophils urine present [Unknown]
  - Malaise [Unknown]
  - Pyrexia [Unknown]
  - Hyperhidrosis [Unknown]
